FAERS Safety Report 7921027-9 (Version None)
Quarter: 2011Q4

REPORT INFORMATION
  Report Type: 
  Country: None (occurrence: None)
  Receive Date: 20111117
  Receipt Date: 20111116
  Transmission Date: 20120403
  Serious: Yes (Life-Threatening, Hospitalization)
  Sender: FDA-Public Use
  Company Number: GB-PFIZER INC-2011189051

PATIENT
  Age: 80 Year
  Sex: Female

DRUGS (12)
  1. ALFACALCIDOL [Concomitant]
     Indication: RENAL FAILURE
     Dosage: 0.25 UG, UNK
  2. ALLOPURINOL [Concomitant]
     Dosage: 100 MG, UNK
     Dates: start: 20110301, end: 20110308
  3. FLUCONAZOLE [Concomitant]
     Dosage: 50 MG, UNK
     Dates: start: 20110301, end: 20110309
  4. ACICLOVIR [Concomitant]
     Dosage: 200 MG, UNK
     Dates: start: 20110301
  5. AMLODIPINE [Concomitant]
     Indication: HYPERTENSION
     Dosage: UNK
  6. CLOPIDOGREL [Concomitant]
     Indication: TRANSIENT ISCHAEMIC ATTACK
     Dosage: 75 MG, UNK
  7. SODIUM BICARBONATE [Concomitant]
     Indication: RENAL FAILURE
     Dosage: 1 G, UNK
  8. ONDANSETRON [Concomitant]
     Dosage: 8 MG, UNK
     Dates: start: 20110301, end: 20110309
  9. EPOETIN ALFA [Concomitant]
     Indication: ANAEMIA
     Dosage: UNK
  10. VELCADE [Suspect]
     Indication: MULTIPLE MYELOMA
     Dosage: 1.3 MG/M2; ONCE
     Dates: start: 20110301, end: 20110301
  11. LANTHANUM CARBONATE [Concomitant]
     Indication: RENAL FAILURE
     Dosage: 1 G, UNK
  12. METHYLPREDNISOLONE SODIUM SUCCINATE [Suspect]
     Indication: MULTIPLE MYELOMA
     Dosage: 125 MG, SINGLE
     Route: 042
     Dates: start: 20110301, end: 20110301

REACTIONS (1)
  - ACUTE LEFT VENTRICULAR FAILURE [None]
